FAERS Safety Report 12247184 (Version 2)
Quarter: 2016Q2

REPORT INFORMATION
  Report Type: Spontaneous
  Country: IN (occurrence: IN)
  Receive Date: 20160407
  Receipt Date: 20160425
  Transmission Date: 20160815
  Serious: Yes (Other)
  Sender: FDA-Public Use
  Company Number: IN-SA-2016SA064379

PATIENT
  Age: 40 Year
  Sex: Female

DRUGS (1)
  1. FEXOFENADINE HYDROCHLORIDE. [Suspect]
     Active Substance: FEXOFENADINE HYDROCHLORIDE
     Indication: RHINITIS
     Route: 065

REACTIONS (6)
  - Leukocytosis [Recovered/Resolved]
  - Neutrophilia [Recovered/Resolved]
  - Eczema [Recovered/Resolved]
  - Acute generalised exanthematous pustulosis [Recovered/Resolved with Sequelae]
  - Pyrexia [Recovered/Resolved]
  - Rash pustular [Recovered/Resolved]
